FAERS Safety Report 14156981 (Version 1)
Quarter: 2017Q4

REPORT INFORMATION
  Report Type: Spontaneous
  Country: US (occurrence: None)
  Receive Date: 20171103
  Receipt Date: 20171103
  Transmission Date: 20180321
  Serious: No
  Sender: FDA-Public Use
  Company Number: None

PATIENT
  Age: 34 Year
  Sex: Female

DRUGS (1)
  1. LEUPROLIDE [Suspect]
     Active Substance: LEUPROLIDE
     Indication: INFERTILITY
     Dosage: DOSE - 10 UNITS
     Route: 058
     Dates: start: 20171010, end: 20171012

REACTIONS (1)
  - Urticaria [None]

NARRATIVE: CASE EVENT DATE: 20171012
